FAERS Safety Report 13576871 (Version 2)
Quarter: 2017Q3

REPORT INFORMATION
  Report Type: Spontaneous
  Country: GB (occurrence: GB)
  Receive Date: 20170524
  Receipt Date: 20170801
  Transmission Date: 20171127
  Serious: Yes (Death, Other)
  Sender: FDA-Public Use
  Company Number: GB-009507513-1705GBR011514

PATIENT
  Age: 95 Year
  Sex: Male

DRUGS (13)
  1. DEXAMETHASONE. [Suspect]
     Active Substance: DEXAMETHASONE
     Indication: PROSTATE CANCER METASTATIC
     Dosage: 500 MICROGRAM, 1 IN 1 D
     Route: 048
     Dates: start: 20160713, end: 20170317
  2. FUROSEMIDE. [Concomitant]
     Active Substance: FUROSEMIDE
     Indication: OEDEMA PERIPHERAL
     Dosage: 20 MG, 1 IN 1 D
     Route: 065
     Dates: start: 20170221, end: 20170313
  3. ONDANSETRON [Concomitant]
     Active Substance: ONDANSETRON
     Indication: VOMITING
     Dosage: 4 MG, UNK
     Route: 042
     Dates: start: 20170318, end: 20170318
  4. DALTEPARIN SODIUM [Concomitant]
     Active Substance: DALTEPARIN SODIUM
     Indication: THROMBOSIS PROPHYLAXIS
     Dosage: 5000 MICROMOL, 1 IN 1 D
     Route: 058
     Dates: start: 20170217, end: 20170223
  5. ORAMORPH [Concomitant]
     Active Substance: MORPHINE SULFATE
     Indication: DYSPNOEA
     Dosage: 5 MG, 1 IN 1 D
     Route: 065
     Dates: start: 20170318, end: 20170318
  6. CLARITHROMYCIN. [Concomitant]
     Active Substance: CLARITHROMYCIN
     Indication: LOWER RESPIRATORY TRACT INFECTION
     Dosage: 1000 MG (500 MG, 2 IN 1 D)
     Route: 065
     Dates: start: 20170217, end: 20170221
  7. ACETAMINOPHEN. [Concomitant]
     Active Substance: ACETAMINOPHEN
     Indication: PAIN MANAGEMENT
     Dosage: UP TO 4 TIMES DAILY (1 G, AS REQUIRED)
     Route: 065
     Dates: start: 20150417, end: 20170317
  8. LOPERAMIDE [Concomitant]
     Active Substance: LOPERAMIDE
     Indication: ANAL INCONTINENCE
     Dosage: 2 MG, 1 IN 1 D
     Route: 048
     Dates: start: 20170228, end: 20170302
  9. PANTOPRAZOLE [Concomitant]
     Active Substance: PANTOPRAZOLE
     Indication: GASTROINTESTINAL HAEMORRHAGE
     Dosage: 40 MG, UNK
     Route: 042
     Dates: start: 20170318, end: 20170318
  10. AMOXICILLIN. [Concomitant]
     Active Substance: AMOXICILLIN
     Indication: LOWER RESPIRATORY TRACT INFECTION
     Dosage: 1 MG, 3 IN 1 D
     Route: 042
     Dates: start: 20170318, end: 20170318
  11. DECAPEPTYL (ACETATE) [Concomitant]
     Active Substance: TRIPTORELIN ACETATE
     Indication: HORMONE THERAPY
     Dosage: 11.25 MG, 1 IN 3 M
     Route: 065
     Dates: start: 20160405, end: 20170117
  12. GLYCERIN. [Concomitant]
     Active Substance: GLYCERIN
     Indication: ANAL INCONTINENCE
     Dosage: 1 DOSAGE FORMS, 1 IN 1 D
     Route: 065
     Dates: start: 20170302, end: 20170303
  13. METRONIDAZOLE. [Concomitant]
     Active Substance: METRONIDAZOLE
     Indication: PNEUMONIA ASPIRATION
     Dosage: 500 MG, 3 IN 1 D
     Route: 042
     Dates: start: 20170318, end: 20170318

REACTIONS (3)
  - Gastrointestinal haemorrhage [Unknown]
  - Pneumonia aspiration [Fatal]
  - Haematemesis [Fatal]

NARRATIVE: CASE EVENT DATE: 20170318
